FAERS Safety Report 9025939 (Version 3)
Quarter: 2013Q1

REPORT INFORMATION
  Report Type: Spontaneous
  Country: US (occurrence: None)
  Receive Date: 20130104
  Receipt Date: 20130128
  Transmission Date: 20140127
  Serious: Yes (Death, Hospitalization)
  Sender: FDA-Public Use
  Company Number: 2012-1215

PATIENT
  Age: 69 Year
  Sex: Male

DRUGS (2)
  1. KYPROLIS [Suspect]
     Indication: PLASMA CELL MYELOMA
     Route: 042
     Dates: start: 20121001
  2. PRILOSEC [Concomitant]

REACTIONS (15)
  - Chest pain [None]
  - Back pain [None]
  - Compression fracture [None]
  - Musculoskeletal disorder [None]
  - Plasma cell myeloma [None]
  - Anxiety [None]
  - Decreased appetite [None]
  - Asthenia [None]
  - Pneumonia [None]
  - Chest discomfort [None]
  - Haemoglobin decreased [None]
  - Haematocrit decreased [None]
  - Unresponsive to stimuli [None]
  - Sudden death [None]
  - Anaemia [None]
